FAERS Safety Report 4507184-5 (Version None)
Quarter: 2004Q4

REPORT INFORMATION
  Report Type: 
  Country: None (occurrence: None)
  Receive Date: 20041025
  Receipt Date: 20040521
  Transmission Date: 20050328
  Serious: Yes (Other)
  Sender: FDA-Public Use
  Company Number: US-JNJFOC-20040505199

PATIENT
  Age: 53 Year
  Sex: Female

DRUGS (6)
  1. INFLIXIMAB (INFLIXIMAB, RECOMBINANT)LYOPHILIZED POWDER [Suspect]
     Indication: RHEUMATOID ARTHRITIS
     Dosage: INTRAVENOUS
     Route: 042
     Dates: start: 20030304
  2. ACCUPRIL [Concomitant]
  3. PREVACID [Concomitant]
  4. GLUBURIDE (GLIBENCLAMIDE) [Concomitant]
  5. MULTIVITAMIN (MULTIVITAMINS) [Concomitant]
  6. TAGAMET [Concomitant]

REACTIONS (2)
  - BRONCHITIS [None]
  - SINUSITIS [None]
